FAERS Safety Report 9627056 (Version 2)
Quarter: 2013Q4

REPORT INFORMATION
  Report Type: Spontaneous
  Country: SE (occurrence: SE)
  Receive Date: 20131016
  Receipt Date: 20131024
  Transmission Date: 20140711
  Serious: Yes (Other)
  Sender: FDA-Public Use
  Company Number: SE-BAXTER-2013BAX039752

PATIENT
  Age: 68 Year
  Sex: Female

DRUGS (4)
  1. SENDOXAN 2000 MG PULVER TILL INJEKTIONSV?TSKA, L?SNING [Suspect]
     Indication: BREAST CANCER
     Route: 042
     Dates: start: 20120912, end: 20120912
  2. FLUOROURACIL [Suspect]
     Indication: BREAST CANCER
     Route: 042
     Dates: start: 20120912, end: 20120912
  3. EPIRUBICIN [Suspect]
     Indication: BREAST CANCER
     Route: 042
     Dates: start: 20120912, end: 20120912
  4. SODIUM CHLORIDE [Suspect]
     Indication: BREAST CANCER
     Route: 042
     Dates: start: 20120912, end: 20120912

REACTIONS (10)
  - Chills [Recovered/Resolved]
  - Pelvic pain [Recovered/Resolved]
  - Headache [Recovered/Resolved]
  - Pallor [Recovered/Resolved]
  - Body temperature increased [Recovered/Resolved]
  - Blood pressure increased [Recovered/Resolved]
  - Oxygen saturation decreased [Recovered/Resolved]
  - Fatigue [Unknown]
  - Dizziness [Unknown]
  - General physical health deterioration [Unknown]
